FAERS Safety Report 9280953 (Version 3)
Quarter: 2013Q2

REPORT INFORMATION
  Report Type: Spontaneous
  Country: FR (occurrence: FR)
  Receive Date: 20130509
  Receipt Date: 20130527
  Transmission Date: 20140414
  Serious: Yes (Death, Hospitalization)
  Sender: FDA-Public Use
  Company Number: FR-PFIZER INC-2013137922

PATIENT
  Age: 73 Year
  Sex: Male

DRUGS (10)
  1. TRIFLUCAN [Suspect]
     Indication: CANDIDA INFECTION
     Dosage: 400 MG, 1X/DAY
     Route: 042
     Dates: start: 20121229, end: 20121229
  2. TRIFLUCAN [Suspect]
     Dosage: 200 MG, 1X/DAY
     Route: 042
     Dates: start: 20121230, end: 20130101
  3. EUPANTOL [Suspect]
     Dosage: 40 MG, 1X/DAY
     Route: 065
     Dates: start: 20121220, end: 20130102
  4. DOBUTAMINE HYDROCHLORIDE [Concomitant]
     Dosage: UNK
  5. NORADRENALINE [Concomitant]
     Dosage: UNK
  6. HYPNOVEL [Concomitant]
     Dosage: UNK
     Dates: start: 20121228
  7. SUFENTANIL [Concomitant]
     Dosage: UNK
     Dates: start: 20121228
  8. KARDEGIC [Concomitant]
     Dosage: UNK
     Dates: start: 20121219
  9. PRAVASTATIN SODIUM [Concomitant]
     Dosage: UNK
     Dates: start: 20121219
  10. PARACETAMOL [Concomitant]
     Dosage: UNK
     Dates: start: 20121219

REACTIONS (3)
  - Cardiogenic shock [Fatal]
  - Multi-organ failure [Fatal]
  - Bone marrow failure [Not Recovered/Not Resolved]
